FAERS Safety Report 15484829 (Version 1)
Quarter: 2018Q4

REPORT INFORMATION
  Report Type: Spontaneous
  Country: US (occurrence: US)
  Receive Date: 20181010
  Receipt Date: 20181010
  Transmission Date: 20190205
  Serious: No
  Sender: FDA-Public Use
  Company Number: US-ROCHE-2025923

PATIENT
  Sex: Female
  Weight: 56.75 kg

DRUGS (4)
  1. ALEVE [Concomitant]
     Active Substance: NAPROXEN SODIUM
     Dosage: ONGOING
     Route: 048
     Dates: start: 20170920
  2. BENADRYL [Concomitant]
     Active Substance: DIPHENHYDRAMINE HYDROCHLORIDE
     Dosage: ONGOING
     Route: 048
     Dates: start: 20170920
  3. COTELLIC [Concomitant]
     Active Substance: COBIMETINIB
     Dosage: ONGOING
     Route: 048
     Dates: start: 20170920
  4. ZELBORAF [Suspect]
     Active Substance: VEMURAFENIB
     Indication: MALIGNANT MELANOMA
     Dosage: 2 TAB TWICE A DAILY, ONGOING
     Route: 048
     Dates: start: 20170830

REACTIONS (1)
  - Diarrhoea [Unknown]
